FAERS Safety Report 12923207 (Version 16)
Quarter: 2020Q2

REPORT INFORMATION
  Report Type: Report from Study
  Country: BR (occurrence: BR)
  Receive Date: 20161109
  Receipt Date: 20200428
  Transmission Date: 20200713
  Serious: Yes (Other)
  Sender: FDA-Public Use
  Company Number: BR-GLAXOSMITHKLINE-BR2016GSK044940

PATIENT
  Sex: Female
  Weight: 58 kg

DRUGS (8)
  1. YELLOW FEVER VACCINE NOS [Concomitant]
     Active Substance: YELLOW FEVER VIRUS STRAIN 17D-204 LIVE ANTIGEN
     Indication: PROPHYLAXIS
     Dosage: UNK
  2. OMEPRAZOLE. [Concomitant]
     Active Substance: OMEPRAZOLE
     Indication: PRODUCT USED FOR UNKNOWN INDICATION
     Dosage: UNK
  3. AAS [Concomitant]
     Active Substance: ASPIRIN
     Indication: PRODUCT USED FOR UNKNOWN INDICATION
     Dosage: UNK
  4. BELIMUMAB [Suspect]
     Active Substance: BELIMUMAB
     Dosage: 580 MG, UNK
  5. HYDROXYCHLOROQUINE [Concomitant]
     Active Substance: HYDROXYCHLOROQUINE
     Indication: PRODUCT USED FOR UNKNOWN INDICATION
     Dosage: UNK
  6. PREDNISONE. [Concomitant]
     Active Substance: PREDNISONE
     Indication: PRODUCT USED FOR UNKNOWN INDICATION
     Dosage: UNK
  7. BELIMUMAB [Suspect]
     Active Substance: BELIMUMAB
     Indication: SYSTEMIC LUPUS ERYTHEMATOSUS
     Dosage: 600 MG, UNK
     Dates: start: 20150911
  8. BELIMUMAB [Suspect]
     Active Substance: BELIMUMAB
     Dosage: 590 MG, UNK

REACTIONS (12)
  - Somnolence [Unknown]
  - Product availability issue [Unknown]
  - Female sterilisation [Unknown]
  - Product dose omission [Not Recovered/Not Resolved]
  - Platelet count decreased [Unknown]
  - Inappropriate schedule of product administration [Recovered/Resolved]
  - Social problem [Unknown]
  - Adverse event [Unknown]
  - Circumstance or information capable of leading to medication error [Recovered/Resolved]
  - Weight decreased [Unknown]
  - Overdose [Unknown]
  - Underdose [Unknown]
